FAERS Safety Report 24981355 (Version 1)
Quarter: 2025Q1

REPORT INFORMATION
  Report Type: Spontaneous
  Country: US (occurrence: None)
  Receive Date: 20250217
  Receipt Date: 20250217
  Transmission Date: 20250409
  Serious: No
  Sender: FDA-CTU
  Company Number: None

PATIENT
  Age: 29 Year
  Sex: Female

DRUGS (5)
  1. DESVENLAFAXINE [Suspect]
     Active Substance: DESVENLAFAXINE
     Indication: Depression
     Dates: start: 20230131, end: 20230716
  2. DESVENLAFAXINE [Suspect]
     Active Substance: DESVENLAFAXINE
     Indication: Anxiety
  3. DESVENLAFAXINE [Suspect]
     Active Substance: DESVENLAFAXINE
  4. TEGRETOL [Concomitant]
     Active Substance: CARBAMAZEPINE
  5. XANAX [Concomitant]
     Active Substance: ALPRAZOLAM

REACTIONS (2)
  - Affective disorder [None]
  - Suicidal ideation [None]

NARRATIVE: CASE EVENT DATE: 20231107
